FAERS Safety Report 15456118 (Version 2)
Quarter: 2019Q1

REPORT INFORMATION
  Report Type: Spontaneous
  Country: CA (occurrence: CA)
  Receive Date: 20181002
  Receipt Date: 20190312
  Transmission Date: 20190417
  Serious: Yes (Life-Threatening, Hospitalization, Other)
  Sender: FDA-Public Use
  Company Number: CA-ELI_LILLY_AND_COMPANY-CA201809011561

PATIENT
  Age: 39 Year
  Sex: Male

DRUGS (1)
  1. TESTOSTERONE SOLUTION (LY900011) [Suspect]
     Active Substance: TESTOSTERONE
     Indication: MEDICAL ANABOLIC THERAPY
     Dosage: UNK UNK, UNKNOWN
     Route: 065

REACTIONS (6)
  - Cardiac failure acute [Recovering/Resolving]
  - Sinus tachycardia [Recovering/Resolving]
  - Pulmonary oedema [Recovering/Resolving]
  - Respiratory failure [Recovering/Resolving]
  - Congestive cardiomyopathy [Recovering/Resolving]
  - Drug abuse [Recovering/Resolving]
